FAERS Safety Report 14476067 (Version 1)
Quarter: 2018Q1

REPORT INFORMATION
  Report Type: Spontaneous
  Country: US (occurrence: US)
  Receive Date: 20180201
  Receipt Date: 20180201
  Transmission Date: 20180509
  Serious: Yes (Life-Threatening, Hospitalization, Other)
  Sender: FDA-Public Use
  Company Number: US-PFIZER INC-2018038432

PATIENT
  Age: 76 Year
  Sex: Male
  Weight: 50.8 kg

DRUGS (12)
  1. SERTRALINE [Concomitant]
     Active Substance: SERTRALINE HYDROCHLORIDE
     Dosage: 50 MG, DAILY
     Route: 048
  2. FUROSEMIDE. [Concomitant]
     Active Substance: FUROSEMIDE
     Dosage: 20 MG, 1X/DAY
     Route: 048
  3. GABAPENTIN. [Concomitant]
     Active Substance: GABAPENTIN
     Dosage: 100 MG, 2X/DAY
     Route: 048
  4. WARFARIN [Concomitant]
     Active Substance: WARFARIN
     Indication: ATRIAL FIBRILLATION
     Dosage: 2.5 MG, 1X/DAY (AT BEDTIME)
     Route: 048
  5. METOPROLOL XL [Concomitant]
     Active Substance: METOPROLOL SUCCINATE
     Dosage: 25 MG (HALF TABLET), DAILY
     Route: 048
  6. TYLENOL [Concomitant]
     Active Substance: ACETAMINOPHEN
     Indication: PAIN
     Dosage: 325 MG, AS NEEDED (EVERY 4-6 HOURS)
     Route: 048
  7. SIMVASTATIN. [Concomitant]
     Active Substance: SIMVASTATIN
     Dosage: 20 MG, 1X/DAY (AT BEDTIME)
     Route: 048
  8. NOVOLOG [Concomitant]
     Active Substance: INSULIN ASPART
     Dosage: UNK, 3X/DAY (2-5 UNITS 3 TIMES WITH MEALS)
     Route: 058
  9. LEVEMIR [Concomitant]
     Active Substance: INSULIN DETEMIR
     Dosage: 5 IU, 1X/DAY (UNDER THE SKIN NIGHTLY)
     Route: 058
  10. ASPIRINE EC [Concomitant]
     Dosage: 81 MG, DAILY
     Route: 048
     Dates: end: 20180123
  11. WARFARIN [Concomitant]
     Active Substance: WARFARIN
     Indication: CEREBROVASCULAR ACCIDENT PROPHYLAXIS
  12. TIKOSYN [Suspect]
     Active Substance: DOFETILIDE
     Indication: ATRIAL FIBRILLATION
     Dosage: 250 UG, 2X/DAY
     Route: 048

REACTIONS (2)
  - Fall [Unknown]
  - Cerebral haemorrhage [Not Recovered/Not Resolved]

NARRATIVE: CASE EVENT DATE: 20180123
